FAERS Safety Report 11126203 (Version 1)
Quarter: 2015Q2

REPORT INFORMATION
  Report Type: Spontaneous
  Country: US (occurrence: US)
  Receive Date: 20150520
  Receipt Date: 20150520
  Transmission Date: 20150821
  Serious: No
  Sender: FDA-Public Use
  Company Number: US-BAYER-2015-247930

PATIENT
  Age: 70 Year
  Sex: Female
  Weight: 103 kg

DRUGS (6)
  1. DESMOPRESSIN [Concomitant]
     Active Substance: DESMOPRESSIN
  2. PROPANOLOL [Concomitant]
     Active Substance: PROPRANOLOL HYDROCHLORIDE
  3. SIMVASTATIN. [Concomitant]
     Active Substance: SIMVASTATIN
  4. ALEVE [Suspect]
     Active Substance: NAPROXEN SODIUM
     Indication: BACK PAIN
     Dosage: 1 DF, QD
     Route: 048
     Dates: start: 2014, end: 2014
  5. LEVOTHYROXINE [Concomitant]
     Active Substance: LEVOTHYROXINE
  6. SERTRALINE [Concomitant]
     Active Substance: SERTRALINE HYDROCHLORIDE

REACTIONS (5)
  - Feeling abnormal [Recovered/Resolved]
  - Blood pressure increased [Recovered/Resolved]
  - Dyspnoea [Recovered/Resolved]
  - Disturbance in attention [Recovered/Resolved]
  - Off label use [Unknown]

NARRATIVE: CASE EVENT DATE: 2014
